FAERS Safety Report 8556773-X (Version None)
Quarter: 2012Q3

REPORT INFORMATION
  Report Type: 
  Country: None (occurrence: None)
  Receive Date: 20120801
  Receipt Date: 20120720
  Transmission Date: 20120928
  Serious: Yes (Death)
  Sender: FDA-Public Use
  Company Number: FR-CELGENEUS-056-21880-12072263

PATIENT
  Sex: Female
  Weight: 48.2 kg

DRUGS (4)
  1. ASPIRIN [Concomitant]
     Indication: THROMBOSIS PROPHYLAXIS
     Dosage: 100 MILLIGRAM
     Route: 065
  2. REVLIMID [Suspect]
     Route: 048
     Dates: end: 20110516
  3. REVLIMID [Suspect]
     Route: 048
     Dates: start: 20101025
  4. VIDAZA [Concomitant]
     Dosage: 60 MILLIGRAM/SQ. METER
     Route: 041

REACTIONS (1)
  - STAPHYLOCOCCAL SEPSIS [None]
